FAERS Safety Report 8445763-3 (Version None)
Quarter: 2012Q2

REPORT INFORMATION
  Report Type: 
  Country: None (occurrence: None)
  Receive Date: 20120618
  Receipt Date: 20120611
  Transmission Date: 20120825
  Serious: Yes (Other)
  Sender: FDA-Public Use
  Company Number: JP-GLAXOSMITHKLINE-B0808408A

PATIENT
  Age: 17 Year
  Sex: Female

DRUGS (3)
  1. ZOVIRAX [Suspect]
     Dosage: 750MG PER DAY
     Route: 042
  2. METHYLPREDNISOLONE [Concomitant]
     Dosage: 1G PER DAY
  3. HUMAN NORMAL IMMUNOGLOBULIN [Concomitant]
     Dosage: 20G PER DAY

REACTIONS (7)
  - MENTAL IMPAIRMENT [None]
  - COMMUNICATION DISORDER [None]
  - DYSKINESIA [None]
  - MATERNAL EXPOSURE DURING PREGNANCY [None]
  - ELECTROENCEPHALOGRAM ABNORMAL [None]
  - ABORTION INDUCED [None]
  - ENCEPHALITIS AUTOIMMUNE [None]
